FAERS Safety Report 8466757-8 (Version None)
Quarter: 2012Q2

REPORT INFORMATION
  Report Type: 
  Country: None (occurrence: None)
  Receive Date: 20120626
  Receipt Date: 20120621
  Transmission Date: 20120825
  Serious: No
  Sender: FDA-Public Use
  Company Number: US-PFIZER INC-2012132731

PATIENT
  Sex: Male
  Weight: 69 kg

DRUGS (3)
  1. LIPITOR [Suspect]
     Indication: BLOOD CHOLESTEROL INCREASED
     Dosage: 10 MG,DAILY
     Dates: start: 20040101
  2. ASPIRIN [Concomitant]
     Dosage: 81 MG, DAILY
  3. NORVASC [Concomitant]
     Indication: HYPERTENSION
     Dosage: 10 MG, DAILY

REACTIONS (1)
  - BLOOD CHOLESTEROL INCREASED [None]
